FAERS Safety Report 5494807-X (Version None)
Quarter: 2007Q4

REPORT INFORMATION
  Report Type: 
  Country: None (occurrence: None)
  Receive Date: 20071024
  Receipt Date: 20071018
  Transmission Date: 20080405
  Serious: Yes (Hospitalization)
  Sender: FDA-Public Use
  Company Number: US-AVENTIS-200715723GDDC

PATIENT
  Age: 65 Year
  Sex: Male
  Weight: 63.5 kg

DRUGS (2)
  1. DOCETAXEL [Suspect]
     Dosage: DOSE: 62 MG AS TOTAL DOSE ADMINISTERED THIS COURSE
     Route: 042
     Dates: start: 20070615, end: 20070615
  2. CODE UNBROKEN [Suspect]
     Dosage: DOSE: 250 AS TOTAL DOSE ADMINISTERED THIS COURSE
     Route: 048
     Dates: start: 20070502, end: 20070615

REACTIONS (11)
  - ANAEMIA [None]
  - ATRIAL FIBRILLATION [None]
  - CEREBRAL INFARCTION [None]
  - DEHYDRATION [None]
  - DIARRHOEA [None]
  - FATIGUE [None]
  - GASTROINTESTINAL HAEMORRHAGE [None]
  - PNEUMONIA [None]
  - PULMONARY ALVEOLAR HAEMORRHAGE [None]
  - RESPIRATORY FAILURE [None]
  - THROMBOCYTOPENIA [None]
